FAERS Safety Report 10073857 (Version 2)
Quarter: 2014Q2

REPORT INFORMATION
  Report Type: Report from Study
  Country: US (occurrence: US)
  Receive Date: 20140411
  Receipt Date: 20140612
  Transmission Date: 20141212
  Serious: Yes (Life-Threatening, Hospitalization, Disabling, Other)
  Sender: FDA-Public Use
  Company Number: US-ABBVIE-14P-163-1221454-00

PATIENT
  Age: 67 Year
  Sex: Male
  Weight: 87.17 kg

DRUGS (9)
  1. HUMIRA [Suspect]
     Indication: PSORIASIS
     Route: 058
     Dates: start: 2008, end: 2011
  2. HUMIRA [Suspect]
     Indication: PSORIATIC ARTHROPATHY
     Route: 058
     Dates: start: 201111, end: 201311
  3. HUMIRA [Suspect]
     Route: 058
     Dates: start: 20140604
  4. BENAZEPRIL [Concomitant]
     Indication: HYPERTENSION
  5. SIMVASTATIN [Concomitant]
     Indication: BLOOD CHOLESTEROL INCREASED
  6. TAMSULOSIN [Concomitant]
     Indication: BENIGN PROSTATIC HYPERPLASIA
  7. CYCLOBENZAPRINE [Concomitant]
     Indication: MUSCLE SPASMS
  8. ALLOPURINOL [Concomitant]
     Indication: GOUT
  9. ROPINIROLE [Concomitant]
     Indication: MUSCLE SPASMS

REACTIONS (17)
  - Brain injury [Unknown]
  - Road traffic accident [Recovered/Resolved]
  - Cardiac arrest [Recovered/Resolved]
  - Loss of consciousness [Recovered/Resolved]
  - Amnesia [Not Recovered/Not Resolved]
  - Amnesia [Not Recovered/Not Resolved]
  - Skull fracture [Unknown]
  - Cerebral haemorrhage [Recovered/Resolved]
  - Meniscus injury [Unknown]
  - Dizziness [Not Recovered/Not Resolved]
  - Ageusia [Recovered/Resolved]
  - Anosmia [Recovered/Resolved]
  - Exostosis [Not Recovered/Not Resolved]
  - Anxiety [Not Recovered/Not Resolved]
  - Arthralgia [Not Recovered/Not Resolved]
  - Fall [Unknown]
  - Blood alcohol increased [Unknown]
